FAERS Safety Report 19180000 (Version 1)
Quarter: 2021Q2

REPORT INFORMATION
  Report Type: Spontaneous
  Country: US (occurrence: US)
  Receive Date: 20210426
  Receipt Date: 20210426
  Transmission Date: 20210717
  Serious: No
  Sender: FDA-Public Use
  Company Number: US-BAYER-2021-129033

PATIENT
  Age: 39 Year
  Sex: Female

DRUGS (1)
  1. CLIMARA [Suspect]
     Active Substance: ESTRADIOL
     Route: 062

REACTIONS (3)
  - Device adhesion issue [None]
  - Product dose omission issue [None]
  - Product physical issue [None]

NARRATIVE: CASE EVENT DATE: 20210307
